FAERS Safety Report 8935457 (Version 2)
Quarter: 2013Q2

REPORT INFORMATION
  Report Type: Spontaneous
  Country: DE (occurrence: None)
  Receive Date: 20121121
  Receipt Date: 20130506
  Transmission Date: 20140414
  Serious: Yes (Death)
  Sender: FDA-Public Use
  Company Number: AUR-APL-2012-04860

PATIENT
  Age: 79 Year
  Sex: Female
  Weight: 52 kg

DRUGS (5)
  1. METFORMIN (METFORMIN) [Suspect]
     Indication: DIABETES MELLITUS
     Dosage: (2000 MG (1000 MG, 2 IN 1 D)
  2. PRADAXA [Suspect]
     Indication: PERIPHERAL ARTERIAL OCCLUSIVE DISEASE
     Dosage: (150 MG, 2 IN 1 D)
     Route: 048
     Dates: start: 20120820
  3. CLOPIDOGREL (CLOPIDOGREL) [Concomitant]
  4. OXYGESIC RET. (OXYCODONE HYDROCHLORIDE) [Concomitant]
  5. NOVALGIN TROPFEN (METAMIZOLE SODIUM MONOHYDRATE) [Concomitant]

REACTIONS (7)
  - Somnolence [None]
  - Hypotonia [None]
  - Lactic acidosis [None]
  - Multi-organ failure [None]
  - Hypotension [None]
  - Aspartate aminotransferase increased [None]
  - Alanine aminotransferase increased [None]
